FAERS Safety Report 10680068 (Version 3)
Quarter: 2015Q1

REPORT INFORMATION
  Report Type: Spontaneous
  Country: JP (occurrence: JP)
  Receive Date: 20141229
  Receipt Date: 20150302
  Transmission Date: 20150720
  Serious: Yes (Other)
  Sender: FDA-Public Use
  Company Number: JP-GLAXOSMITHKLINE-JP2014JPN020073

PATIENT
  Age: 66 Year
  Sex: Male

DRUGS (5)
  1. LAMICTAL [Suspect]
     Active Substance: LAMOTRIGINE
     Dosage: 25 UNK, UNK
     Route: 048
     Dates: start: 20141011, end: 20141024
  2. LAMICTAL [Suspect]
     Active Substance: LAMOTRIGINE
     Indication: EPILEPSY
     Dosage: 25 MG, QD
     Route: 048
     Dates: start: 20140926, end: 20141010
  3. TEGRETOL [Suspect]
     Active Substance: CARBAMAZEPINE
     Indication: EPILEPSY
     Dosage: UNK
     Route: 048
     Dates: start: 20141007, end: 20141010
  4. TEGRETOL [Suspect]
     Active Substance: CARBAMAZEPINE
     Dosage: UNK
     Route: 048
     Dates: start: 20141011, end: 20141106
  5. LAMICTAL [Suspect]
     Active Substance: LAMOTRIGINE
     Dosage: 25 UNK, UNK
     Route: 048
     Dates: start: 20141025, end: 20141106

REACTIONS (8)
  - Pruritus generalised [Unknown]
  - Erythema [Unknown]
  - Loss of consciousness [Unknown]
  - Somnolence [Unknown]
  - Rash erythematous [Unknown]
  - Drug eruption [Recovering/Resolving]
  - Disorientation [Unknown]
  - Rash generalised [Recovered/Resolved]

NARRATIVE: CASE EVENT DATE: 201410
